FAERS Safety Report 16105089 (Version 3)
Quarter: 2019Q2

REPORT INFORMATION
  Report Type: Spontaneous
  Country: TR (occurrence: TR)
  Receive Date: 20190322
  Receipt Date: 20190507
  Transmission Date: 20190711
  Serious: Yes (Hospitalization)
  Sender: FDA-Public Use
  Company Number: TR-NOVOPROD-652691

PATIENT
  Age: 86 Year
  Sex: Female
  Weight: 80 kg

DRUGS (7)
  1. TARDEN [Concomitant]
     Indication: BLOOD CHOLESTEROL INCREASED
     Dosage: ONCE DAILY
     Route: 065
     Dates: start: 20040311
  2. RYZODEG 70/30 [Suspect]
     Active Substance: INSULIN ASPART\INSULIN DEGLUDEC
     Indication: TYPE 2 DIABETES MELLITUS
     Dosage: 72 IU, QD
     Route: 058
     Dates: start: 20180312
  3. THYROMAZOL [Concomitant]
     Indication: HYPERTHYROIDISM
     Dosage: ONCE DAILY
     Route: 065
     Dates: start: 20180311
  4. MICARDIS PLUS [Concomitant]
     Active Substance: HYDROCHLOROTHIAZIDE\TELMISARTAN
     Indication: HYPERTENSION
     Dosage: ONCE DAILY
     Route: 065
     Dates: start: 20040311
  5. BELOC                              /00030002/ [Concomitant]
     Active Substance: PROPRANOLOL HYDROCHLORIDE
     Indication: HYPERTENSION
     Dosage: ONCE DAILY
     Route: 065
     Dates: start: 20040311
  6. RYZODEG 70/30 [Suspect]
     Active Substance: INSULIN ASPART\INSULIN DEGLUDEC
     Dosage: 72 IU, QD
     Route: 058
     Dates: start: 20190307
  7. ELIQUIS [Concomitant]
     Active Substance: APIXABAN
     Dosage: TWICE DAILY
     Route: 065
     Dates: start: 20180311

REACTIONS (5)
  - Acidosis [Recovered/Resolved]
  - Respiratory disorder [Recovered/Resolved]
  - Pneumonia [Recovered/Resolved]
  - Blood glucose increased [Recovered/Resolved]
  - Drug ineffective [Unknown]

NARRATIVE: CASE EVENT DATE: 20190307
